FAERS Safety Report 14699071 (Version 1)
Quarter: 2018Q1

REPORT INFORMATION
  Report Type: Report from Study
  Country: BR (occurrence: BR)
  Receive Date: 20180330
  Receipt Date: 20180330
  Transmission Date: 20180509
  Serious: Yes (Death, Other)
  Sender: FDA-Public Use
  Company Number: PHHY2018BR055390

PATIENT
  Age: 93 Year
  Sex: Female

DRUGS (1)
  1. ACLASTA [Suspect]
     Active Substance: ZOLEDRONIC ACID
     Indication: OSTEOPOROSIS
     Dosage: UNK UNK, Q12MO
     Route: 065

REACTIONS (6)
  - Malaise [Fatal]
  - Fall [Not Recovered/Not Resolved]
  - Asthenia [Fatal]
  - Ill-defined disorder [Fatal]
  - Skin ulcer [Not Recovered/Not Resolved]
  - Femur fracture [Not Recovered/Not Resolved]
